FAERS Safety Report 5741063-0 (Version None)
Quarter: 2008Q2

REPORT INFORMATION
  Report Type: 
  Country: None (occurrence: None)
  Receive Date: 20080514
  Receipt Date: 20080508
  Transmission Date: 20081010
  Serious: Yes (Other)
  Sender: FDA-Public Use
  Company Number: MEDI-0006785

PATIENT
  Sex: Female

DRUGS (3)
  1. SYNAGIS [Suspect]
     Dates: start: 20080101, end: 20080301
  2. SYNAGIS [Suspect]
     Dates: start: 20080101
  3. SYNAGIS [Suspect]
     Dates: start: 20080201

REACTIONS (1)
  - CONVULSION [None]
